FAERS Safety Report 19548565 (Version 2)
Quarter: 2022Q1

REPORT INFORMATION
  Report Type: Other
  Country: US (occurrence: None)
  Receive Date: 20210714
  Receipt Date: 20220205
  Transmission Date: 20220423
  Serious: Yes (Other)
  Sender: FDA-Public Use
  Company Number: US-ROCHE-2831034

PATIENT
  Sex: Female

DRUGS (2)
  1. ESBRIET [Suspect]
     Active Substance: PIRFENIDONE
     Indication: Systemic sclerosis pulmonary
     Route: 048
  2. ESBRIET [Suspect]
     Active Substance: PIRFENIDONE
     Indication: Autoimmune disorder

REACTIONS (5)
  - Pneumonia [Unknown]
  - Off label use [Unknown]
  - Oxygen saturation decreased [Unknown]
  - Mental impairment [Unknown]
  - Memory impairment [Unknown]
